FAERS Safety Report 15391201 (Version 2)
Quarter: 2018Q4

REPORT INFORMATION
  Report Type: Spontaneous
  Country: US (occurrence: US)
  Receive Date: 20180917
  Receipt Date: 20181003
  Transmission Date: 20190204
  Serious: Yes (Hospitalization, Other)
  Sender: FDA-Public Use
  Company Number: US-TESARO, INC-US-2018TSO04555

PATIENT
  Sex: Female

DRUGS (3)
  1. ZEJULA [Suspect]
     Active Substance: NIRAPARIB
     Indication: NEOPLASM MALIGNANT
     Dosage: 300 MG, QD
     Route: 048
     Dates: start: 201711, end: 201712
  2. ZEJULA [Suspect]
     Active Substance: NIRAPARIB
     Dosage: 200 MG, UNK
     Route: 048
     Dates: start: 201804
  3. ZEJULA [Suspect]
     Active Substance: NIRAPARIB
     Dosage: 100 MG, QD
     Route: 048
     Dates: start: 201807

REACTIONS (8)
  - Neoplasm progression [Unknown]
  - Product dose omission [Recovered/Resolved]
  - Malaise [Unknown]
  - Vomiting [Unknown]
  - Pneumonia aspiration [Unknown]
  - Infection [Unknown]
  - Drug ineffective [Unknown]
  - Chest discomfort [Unknown]

NARRATIVE: CASE EVENT DATE: 201712
